FAERS Safety Report 23305219 (Version 1)
Quarter: 2023Q4

REPORT INFORMATION
  Report Type: Report from Study
  Country: ES (occurrence: ES)
  Receive Date: 20231218
  Receipt Date: 20231218
  Transmission Date: 20240110
  Serious: Yes (Other)
  Sender: FDA-Public Use
  Company Number: ES-JNJFOC-20231219707

PATIENT
  Age: 44 Year
  Sex: Female

DRUGS (3)
  1. TREMFYA [Suspect]
     Active Substance: GUSELKUMAB
     Indication: Crohn^s disease
     Dosage: AT WEEKS 0, 4 AND 8
     Route: 042
  2. TREMFYA [Suspect]
     Active Substance: GUSELKUMAB
     Dosage: 12 WEEK
     Route: 058
  3. TREMFYA [Suspect]
     Active Substance: GUSELKUMAB

REACTIONS (2)
  - Hepatitis toxic [Recovered/Resolved]
  - Off label use [Unknown]
